FAERS Safety Report 20328814 (Version 1)
Quarter: 2022Q1

REPORT INFORMATION
  Report Type: Spontaneous
  Country: IT (occurrence: None)
  Receive Date: 20220112
  Receipt Date: 20220112
  Transmission Date: 20220424
  Serious: Yes (Other)
  Sender: FDA-Public Use
  Company Number: IT-Merck Healthcare KGaA-9264737

PATIENT
  Sex: Female

DRUGS (1)
  1. LEVOTHYROXINE SODIUM [Suspect]
     Active Substance: LEVOTHYROXINE SODIUM
     Indication: Product used for unknown indication
     Dosage: SHE TAKES 1 TABLET OF 75 MCG + HALF OF 25 MCG FOR 5 DAYS, FOR 2 DAYS SHE TAKES THE 100 MCG DOSAGE.
     Route: 048
     Dates: start: 202108

REACTIONS (5)
  - Dysentery [Unknown]
  - Abdominal pain upper [Unknown]
  - Alopecia [Unknown]
  - Hormone level abnormal [Unknown]
  - Rash [Unknown]

NARRATIVE: CASE EVENT DATE: 20210816
